FAERS Safety Report 5324588-1 (Version None)
Quarter: 2007Q2

REPORT INFORMATION
  Report Type: 
  Country: None (occurrence: None)
  Receive Date: 20070514
  Receipt Date: 20070502
  Transmission Date: 20071010
  Serious: Yes (Hospitalization, Other)
  Sender: FDA-Public Use
  Company Number: US-PFIZER INC-2007036964

PATIENT

DRUGS (2)
  1. NEURONTIN [Suspect]
     Indication: NERVOUSNESS
     Dates: start: 20001001, end: 20010401
  2. NEURONTIN [Suspect]
     Indication: DEPRESSION

REACTIONS (3)
  - NERVOUSNESS [None]
  - RENAL DISORDER [None]
  - SUICIDAL IDEATION [None]
